FAERS Safety Report 18375196 (Version 2)
Quarter: 2025Q3

REPORT INFORMATION
  Report Type: Report from Study
  Country: CA (occurrence: CA)
  Receive Date: 20201012
  Receipt Date: 20250912
  Transmission Date: 20251020
  Serious: Yes (Hospitalization, Other)
  Sender: CELLTRION
  Company Number: CA-CELLTRION INC.-2020CA028575

PATIENT

DRUGS (13)
  1. RITUXIMAB [Suspect]
     Active Substance: RITUXIMAB
     Indication: Neuromyelitis optica spectrum disorder
     Route: 042
  2. AZATHIOPRINE [Concomitant]
     Active Substance: AZATHIOPRINE
  3. AZATHIOPRINE [Concomitant]
     Active Substance: AZATHIOPRINE
  4. BACLOFEN [Concomitant]
     Active Substance: BACLOFEN
  5. CARBAMAZEPINE [Concomitant]
     Active Substance: CARBAMAZEPINE
  6. DALFAMPRIDINE [Concomitant]
     Active Substance: DALFAMPRIDINE
  7. LYRICA [Concomitant]
     Active Substance: PREGABALIN
  8. PREDNISONE [Concomitant]
     Active Substance: PREDNISONE
  9. PREGABALIN [Concomitant]
     Active Substance: PREGABALIN
  10. PROLIA [Concomitant]
     Active Substance: DENOSUMAB
  11. TEGRETOL [Concomitant]
     Active Substance: CARBAMAZEPINE
  12. VALACYCLOVIR HYDROCHLORIDE [Concomitant]
     Active Substance: VALACYCLOVIR HYDROCHLORIDE
  13. ZOPICLONE [Concomitant]
     Active Substance: ZOPICLONE

REACTIONS (3)
  - Neuromyelitis optica spectrum disorder [Unknown]
  - Off label use [Unknown]
  - Intentional product use issue [Unknown]
